FAERS Safety Report 21305705 (Version 5)
Quarter: 2023Q1

REPORT INFORMATION
  Report Type: Report from Study
  Country: US (occurrence: US)
  Receive Date: 20220908
  Receipt Date: 20230209
  Transmission Date: 20230417
  Serious: Yes (Hospitalization, Other)
  Sender: FDA-Public Use
  Company Number: US-ACADIA PHARMACEUTICALS INC.-ACA-2022-PIM-002953

PATIENT
  Sex: Female

DRUGS (7)
  1. NUPLAZID [Suspect]
     Active Substance: PIMAVANSERIN TARTRATE
     Indication: Parkinson^s disease psychosis
     Dosage: 34 MILLIGRAM, QD
     Route: 048
     Dates: start: 202208, end: 2022
  2. NUPLAZID [Suspect]
     Active Substance: PIMAVANSERIN TARTRATE
     Indication: Parkinson^s disease
  3. RYTARY [Concomitant]
     Active Substance: CARBIDOPA\LEVODOPA
  4. ENTACAPONE [Concomitant]
     Active Substance: ENTACAPONE
  5. PRAVASTATIN [Concomitant]
     Active Substance: PRAVASTATIN
  6. DONEPEZIL [Concomitant]
     Active Substance: DONEPEZIL
  7. ASPIRIN [Concomitant]
     Active Substance: ASPIRIN

REACTIONS (5)
  - Urinary tract infection [Unknown]
  - Kidney infection [Recovered/Resolved]
  - Product dose omission issue [Unknown]
  - Balance disorder [Recovered/Resolved]
  - Confusional state [Recovered/Resolved]
